FAERS Safety Report 13360445 (Version 6)
Quarter: 2017Q3

REPORT INFORMATION
  Report Type: Report from Study
  Country: DE (occurrence: DE)
  Receive Date: 20170322
  Receipt Date: 20170824
  Transmission Date: 20171127
  Serious: No
  Sender: FDA-Public Use
  Company Number: DE-OTSUKA-2017_006416

PATIENT
  Age: 60 Year
  Sex: Female
  Weight: 96 kg

DRUGS (4)
  1. TOLVAPTAN [Suspect]
     Active Substance: TOLVAPTAN
     Dosage: 30 MG, QD (EVENING)
     Route: 048
     Dates: start: 20161014
  2. NOVALGIN [Concomitant]
     Active Substance: METAMIZOLE SODIUM
     Indication: BACK PAIN
     Dosage: 1000 MG, BID
     Route: 048
     Dates: start: 20170213, end: 20170315
  3. CORTISON [Concomitant]
     Active Substance: CORTISONE ACETATE
     Indication: BACK PAIN
     Dosage: UNK
     Route: 065
  4. TOLVAPTAN [Suspect]
     Active Substance: TOLVAPTAN
     Indication: CONGENITAL CYSTIC KIDNEY DISEASE
     Dosage: 90 MG, QD (MORNING)
     Route: 048
     Dates: start: 20161014

REACTIONS (1)
  - Liver function test increased [Not Recovered/Not Resolved]

NARRATIVE: CASE EVENT DATE: 20170313
